FAERS Safety Report 4953847-7 (Version None)
Quarter: 2006Q1

REPORT INFORMATION
  Report Type: 
  Country: None (occurrence: None)
  Receive Date: 20060321
  Receipt Date: 20060310
  Transmission Date: 20060701
  Serious: Yes (Hospitalization, Other)
  Sender: FDA-Public Use
  Company Number: 163-20785-06030348

PATIENT
  Age: 19 Year
  Sex: Female
  Weight: 52.3 kg

DRUGS (5)
  1. THALOMID [Suspect]
     Indication: BONE NEOPLASM MALIGNANT
     Dosage: 250 MG, QD, ORAL
     Route: 048
     Dates: start: 20060209
  2. FENOFIBRATE [Suspect]
     Indication: BONE NEOPLASM MALIGNANT
     Dosage: 145 MG, QD, ORAL
     Route: 048
     Dates: start: 20060209
  3. CELEBREX [Suspect]
     Indication: BONE NEOPLASM MALIGNANT
     Dosage: 800 MG, QD, ORAL
     Route: 048
     Dates: start: 20060209
  4. ETOPOSIDE [Suspect]
     Indication: BONE NEOPLASM MALIGNANT
     Dosage: 100 MG, QD
     Dates: start: 20060209
  5. CYCLOPHOSPHAMIDE [Suspect]
     Indication: BONE NEOPLASM MALIGNANT

REACTIONS (6)
  - MUCOSAL INFLAMMATION [None]
  - NEUTROPHIL COUNT DECREASED [None]
  - PAIN [None]
  - PLATELET COUNT DECREASED [None]
  - RADIATION MUCOSITIS [None]
  - WHITE BLOOD CELL COUNT DECREASED [None]
